FAERS Safety Report 9257147 (Version 3)
Quarter: 2014Q1

REPORT INFORMATION
  Report Type: Spontaneous
  Country: US (occurrence: US)
  Receive Date: 20130426
  Receipt Date: 20140107
  Transmission Date: 20141002
  Serious: Yes (Other)
  Sender: FDA-Public Use
  Company Number: US-ASTRAZENECA-2013SE27831

PATIENT
  Age: 40 Year
  Sex: Male
  Weight: 120.2 kg

DRUGS (9)
  1. NEXIUM [Suspect]
     Indication: GASTROOESOPHAGEAL REFLUX DISEASE
     Dosage: AS NEEDED
     Route: 048
     Dates: start: 2000, end: 2012
  2. NEXIUM [Suspect]
     Indication: GASTROOESOPHAGEAL REFLUX DISEASE
     Dosage: USUALLY ONCE A DAY
     Route: 048
     Dates: start: 2000, end: 2012
  3. TUMS [Concomitant]
     Dates: start: 2000, end: 2011
  4. ALKA SELTZER [Concomitant]
  5. CELEBREX [Concomitant]
     Indication: ARTHRITIS
  6. METOPROLOL [Concomitant]
     Indication: BLOOD PRESSURE ABNORMAL
  7. PERCOCET [Concomitant]
     Indication: PAIN
  8. CHILDRENS ASPRIN [Concomitant]
     Indication: THROMBOSIS PROPHYLAXIS
  9. LISINOPRIL [Concomitant]
     Indication: BLOOD PRESSURE ABNORMAL

REACTIONS (8)
  - Hip fracture [Unknown]
  - Thyroid disorder [Unknown]
  - Osteoporosis [Unknown]
  - Bone disorder [Unknown]
  - Calcium deficiency [Unknown]
  - Rheumatoid arthritis [Unknown]
  - Osteopenia [Unknown]
  - Intervertebral disc degeneration [Unknown]
